FAERS Safety Report 10029728 (Version 1)
Quarter: 2014Q1

REPORT INFORMATION
  Report Type: Spontaneous
  Country: US (occurrence: None)
  Receive Date: 20140321
  Receipt Date: 20140321
  Transmission Date: 20141002
  Serious: No
  Sender: FDA-Public Use
  Company Number: None

PATIENT
  Age: 59 Year
  Sex: Male
  Weight: 92.5 kg

DRUGS (2)
  1. ROCURONIUM [Suspect]
     Indication: NEUROMUSCULAR BLOCKADE
  2. ROCURONIUM [Suspect]
     Indication: SURGERY

REACTIONS (2)
  - Drug effect decreased [None]
  - Muscle twitching [None]
